FAERS Safety Report 9072481 (Version 1)
Quarter: 2013Q1

REPORT INFORMATION
  Report Type: Report from Study
  Country: US (occurrence: US)
  Receive Date: 20130128
  Receipt Date: 20130128
  Transmission Date: 20140127
  Serious: No
  Sender: FDA-Public Use
  Company Number: US-ABBOTT-12P-163-0917202-00

PATIENT
  Age: 29 Year
  Sex: Female

DRUGS (3)
  1. HUMIRA 40 MG/0.8 ML PEN [Suspect]
     Indication: PSORIASIS
     Dates: start: 201201
  2. BUSPAR [Concomitant]
     Indication: ANXIETY
  3. SEROQUEL [Concomitant]
     Indication: BIPOLAR DISORDER

REACTIONS (5)
  - Nasopharyngitis [Not Recovered/Not Resolved]
  - Chest pain [Unknown]
  - Bronchitis [Unknown]
  - Injection site erythema [Unknown]
  - Injection site pruritus [Unknown]
